FAERS Safety Report 5563580-9 (Version None)
Quarter: 2007Q4

REPORT INFORMATION
  Report Type: 
  Country: None (occurrence: None)
  Receive Date: 20071217
  Receipt Date: 20070711
  Transmission Date: 20080405
  Serious: No
  Sender: FDA-Public Use
  Company Number: US-ASTRAZENECA-2007UW16269

PATIENT
  Age: 84 Year
  Sex: Female
  Weight: 49.9 kg

DRUGS (4)
  1. CRESTOR [Suspect]
     Indication: BLOOD CHOLESTEROL INCREASED
     Route: 048
  2. VITAMINS [Concomitant]
  3. ASPIRIN [Concomitant]
  4. EYEDROPS [Concomitant]

REACTIONS (2)
  - EYELID EXFOLIATION [None]
  - SKIN EXFOLIATION [None]
